FAERS Safety Report 9606172 (Version 2)
Quarter: 2013Q4

REPORT INFORMATION
  Report Type: Spontaneous
  Country: US (occurrence: US)
  Receive Date: 20131008
  Receipt Date: 20131008
  Transmission Date: 20140711
  Serious: No
  Sender: FDA-Public Use
  Company Number: US-AMGEN-USASP2013042379

PATIENT
  Age: 50 Year
  Sex: Female
  Weight: 70.7 kg

DRUGS (4)
  1. PROLIA [Suspect]
     Indication: PRODUCT USED FOR UNKNOWN INDICATION
     Dosage: 60 UNK, Q6MO
     Route: 058
     Dates: start: 20110523
  2. SYNTHROID [Concomitant]
  3. CYTOMEL [Concomitant]
  4. CALCIUM [Concomitant]

REACTIONS (1)
  - Eczema [Not Recovered/Not Resolved]
